FAERS Safety Report 8746273 (Version 3)
Quarter: 2013Q1

REPORT INFORMATION
  Report Type: Report from Study
  Country: SE (occurrence: SE)
  Receive Date: 20120827
  Receipt Date: 20130111
  Transmission Date: 20140127
  Serious: Yes (Death, Other)
  Sender: FDA-Public Use
  Company Number: SE-SANOFI-AVENTIS-2012SA060085

PATIENT
  Age: 73 Year
  Sex: Male
  Weight: 86 kg

DRUGS (10)
  1. DOCETAXEL [Suspect]
     Indication: NON-SMALL CELL LUNG CANCER STAGE IV
     Dosage: EVERY 3 WEEKS, DAY 1 OF A 21 DAY CYCLE
     Route: 041
     Dates: start: 20120628, end: 20120628
  2. INVESTIGATIONAL DRUG [Suspect]
     Indication: NON-SMALL CELL LUNG CANCER STAGE IV
     Dosage: EVERY 3 WEEKS, DAY 1 OF A 21 DAY CYCLE
     Route: 042
     Dates: start: 20120628, end: 20120628
  3. BETAMETHASONE [Concomitant]
     Indication: PREMEDICATION
  4. ONDANSETRON [Concomitant]
     Indication: PREMEDICATION
  5. EZETIMIBE [Concomitant]
     Indication: HYPERCHOLESTEROLAEMIA
     Dates: start: 20111027
  6. PARACETAMOL [Concomitant]
     Indication: PAIN
     Dates: start: 20120314
  7. BUDESONIDE [Concomitant]
     Indication: CHRONIC OBSTRUCTIVE PULMONARY DISEASE
     Dates: start: 20120105
  8. TIOTROPIUM BROMIDE [Concomitant]
     Indication: CHRONIC OBSTRUCTIVE PULMONARY DISEASE
     Dates: start: 20120105
  9. BENZYDAMINE [Concomitant]
     Indication: APHTHOUS STOMATITIS
     Dates: start: 20120709
  10. ALL OTHER THERAPEUTIC PRODUCTS [Concomitant]

REACTIONS (2)
  - Sudden death [Fatal]
  - Neutropenia [Unknown]
